FAERS Safety Report 25129812 (Version 1)
Quarter: 2025Q1

REPORT INFORMATION
  Report Type: Spontaneous
  Country: US (occurrence: US)
  Receive Date: 20250327
  Receipt Date: 20250327
  Transmission Date: 20250408
  Serious: No
  Sender: BAYER HEALTHCARE PHARMACEUTICALS INC.
  Company Number: US-BAYER-2025A040263

PATIENT
  Age: 52 Year
  Sex: Female

DRUGS (1)
  1. CLIMARA PRO [Suspect]
     Active Substance: ESTRADIOL\LEVONORGESTREL
     Route: 062
     Dates: start: 20250310, end: 202503

REACTIONS (2)
  - Device adhesion issue [None]
  - Wrong technique in product usage process [None]

NARRATIVE: CASE EVENT DATE: 20250313
